FAERS Safety Report 7966354-4 (Version None)
Quarter: 2011Q4

REPORT INFORMATION
  Report Type: 
  Country: None (occurrence: None)
  Receive Date: 20111208
  Receipt Date: 20111202
  Transmission Date: 20120403
  Serious: Yes (Hospitalization)
  Sender: FDA-Public Use
  Company Number: JP-B.I. PHARMACEUTICALS,INC./RIDGEFIELD-2011-BP-27322NB

PATIENT
  Age: 87 Year
  Sex: Female
  Weight: 51.4 kg

DRUGS (12)
  1. PRADAXA [Suspect]
     Indication: ATRIAL FIBRILLATION
     Dosage: 220 MG
     Route: 048
     Dates: start: 20111126, end: 20111129
  2. ADENOSINE [Concomitant]
     Dosage: NR
     Route: 065
  3. OLMESARTAN MEDOXOMIL [Concomitant]
     Dosage: NR
     Route: 065
  4. TRICHLORMETHIAZIDE [Concomitant]
     Dosage: NR
     Route: 065
  5. VERAPAMIL HCL [Concomitant]
     Dosage: NR
     Route: 065
  6. SIMVASTATIN [Concomitant]
     Dosage: NR
     Route: 065
  7. SUNRYTHM [Concomitant]
     Dosage: NR
     Route: 065
  8. EPADEL [Concomitant]
     Dosage: NR
     Route: 065
  9. BISOPROLOL FUMARATE [Concomitant]
     Dosage: NR
     Route: 065
  10. ASPIRIN [Concomitant]
     Dosage: NR
     Route: 065
  11. ANPLAG [Concomitant]
     Dosage: NR
     Route: 065
  12. YODEL-S [Concomitant]
     Dosage: NR
     Route: 065

REACTIONS (1)
  - COAGULOPATHY [None]
